FAERS Safety Report 17031422 (Version 1)
Quarter: 2019Q4

REPORT INFORMATION
  Report Type: Report from Study
  Country: US (occurrence: US)
  Receive Date: 20191114
  Receipt Date: 20191114
  Transmission Date: 20200122
  Serious: Yes (Other)
  Sender: FDA-Public Use
  Company Number: US-GILEAD-2019-0437056

PATIENT
  Age: 77 Year
  Sex: Male

DRUGS (3)
  1. DILTIAZEM. [Concomitant]
     Active Substance: DILTIAZEM
  2. OPSUMIT [Concomitant]
     Active Substance: MACITENTAN
  3. AMBRISENTAN [Suspect]
     Active Substance: AMBRISENTAN
     Indication: PRODUCT USED FOR UNKNOWN INDICATION
     Dosage: UNK
     Route: 065

REACTIONS (7)
  - Oxygen saturation abnormal [Recovering/Resolving]
  - Drug ineffective [Recovered/Resolved]
  - Fluid retention [Not Recovered/Not Resolved]
  - Blood pressure decreased [Recovering/Resolving]
  - Anaemia [Not Recovered/Not Resolved]
  - Cognitive disorder [Not Recovered/Not Resolved]
  - Orthostatic hypotension [Recovering/Resolving]
